FAERS Safety Report 4727958-5 (Version None)
Quarter: 2005Q3

REPORT INFORMATION
  Report Type: 
  Country: None (occurrence: None)
  Receive Date: 20050725
  Receipt Date: 20050325
  Transmission Date: 20060218
  Serious: No
  Sender: FDA-Public Use
  Company Number: USA050394080

PATIENT
  Age: 49 Year
  Sex: Male
  Weight: 127 kg

DRUGS (2)
  1. STRATTERA [Suspect]
     Indication: ATTENTION DEFICIT/HYPERACTIVITY DISORDER
     Dosage: 25 MG/1 DAY
     Dates: start: 20050324
  2. HYDROCHLOROTHIAZIDE [Concomitant]

REACTIONS (7)
  - ASTHENIA [None]
  - DIZZINESS [None]
  - FEELING ABNORMAL [None]
  - INFLUENZA LIKE ILLNESS [None]
  - LETHARGY [None]
  - SENSATION OF HEAVINESS [None]
  - TREMOR [None]
